FAERS Safety Report 5845390-8 (Version None)
Quarter: 2008Q3

REPORT INFORMATION
  Report Type: 
  Country: None (occurrence: None)
  Receive Date: 20080814
  Receipt Date: 20080805
  Transmission Date: 20090109
  Serious: Yes (Life-Threatening, Hospitalization, Disabling)
  Sender: FDA-Public Use
  Company Number: US-MERCK-0808USA00983

PATIENT
  Age: 68 Year
  Sex: Male

DRUGS (1)
  1. VYTORIN [Suspect]
     Indication: BLOOD CHOLESTEROL INCREASED
     Route: 048
     Dates: start: 20080701

REACTIONS (4)
  - ABASIA [None]
  - MOVEMENT DISORDER [None]
  - RENAL FAILURE [None]
  - RHABDOMYOLYSIS [None]
